FAERS Safety Report 4841981-1 (Version None)
Quarter: 2005Q4

REPORT INFORMATION
  Report Type: 
  Country: None (occurrence: None)
  Receive Date: 20051129
  Receipt Date: 20051111
  Transmission Date: 20060501
  Serious: Yes (Hospitalization)
  Sender: FDA-Public Use
  Company Number: 2005155448

PATIENT
  Age: 47 Year
  Sex: Female
  Weight: 72.5755 kg

DRUGS (2)
  1. LISTERINE (MENTHOL, METHYL SALICYLATE, EUCALYPTOL, THYMOL) [Suspect]
     Indication: ALCOHOLISM
     Dosage: ORAL
     Route: 048
     Dates: start: 20051101
  2. TRAMADOL HCL [Concomitant]

REACTIONS (3)
  - CONTUSION [None]
  - FALL [None]
  - INTENTIONAL DRUG MISUSE [None]
